FAERS Safety Report 4650500-4 (Version None)
Quarter: 2005Q2

REPORT INFORMATION
  Report Type: 
  Country: None (occurrence: None)
  Receive Date: 20050429
  Receipt Date: 20050413
  Transmission Date: 20051028
  Serious: Yes (Death)
  Sender: FDA-Public Use
  Company Number: 2005-DE-01433GD

PATIENT
  Age: 47 Year
  Sex: Female

DRUGS (5)
  1. MIRTAZAPINE [Suspect]
     Indication: SCHIZOPHRENIA
  2. QUETIAPINE FUMARATE [Suspect]
     Indication: SCHIZOPHRENIA
  3. VALPROIC ACID [Concomitant]
  4. BUPROPION (BUPROPION) [Suspect]
     Indication: SCHIZOPHRENIA
  5. AMITRIPTYLINE HCL [Suspect]
     Indication: SCHIZOPHRENIA

REACTIONS (1)
  - OVERDOSE [None]
